FAERS Safety Report 7247529-9 (Version None)
Quarter: 2011Q1

REPORT INFORMATION
  Report Type: 
  Country: None (occurrence: None)
  Receive Date: 20110127
  Receipt Date: 20110121
  Transmission Date: 20110831
  Serious: Yes (Disabling)
  Sender: FDA-Public Use
  Company Number: BR-B.I. PHARMACEUTICALS,INC./RIDGEFIELD-2011-BR-00105BR

PATIENT
  Sex: Male

DRUGS (3)
  1. SIFROL [Suspect]
     Indication: PARKINSON'S DISEASE
     Dosage: 3 MG
     Route: 048
     Dates: start: 20010921
  2. CITALOPRAM [Concomitant]
     Indication: HYPERTENSION
     Dosage: NR
  3. ATACAND [Concomitant]
     Indication: HYPERTENSION
     Dosage: NR

REACTIONS (5)
  - MOVEMENT DISORDER [None]
  - FATIGUE [None]
  - PAIN [None]
  - MUSCLE RIGIDITY [None]
  - SPEECH DISORDER [None]
